FAERS Safety Report 11173296 (Version 2)
Quarter: 2018Q1

REPORT INFORMATION
  Report Type: Spontaneous
  Country: US (occurrence: US)
  Receive Date: 20150608
  Receipt Date: 20180302
  Transmission Date: 20180508
  Serious: Yes (Hospitalization, Disabling, Other)
  Sender: FDA-Public Use
  Company Number: US-ENDO PHARMACEUTICALS INC.-201408078

PATIENT
  Age: 60 Year
  Sex: Male
  Weight: 81.63 kg

DRUGS (4)
  1. ANDROGEL [Suspect]
     Active Substance: TESTOSTERONE
     Dosage: TWO PUMPS
     Route: 062
     Dates: start: 201209
  2. TESTIM [Suspect]
     Active Substance: TESTOSTERONE
     Indication: HYPOGONADISM
     Dosage: 50 MG, DAILY
     Route: 062
     Dates: start: 201203, end: 201204
  3. ANDROGEL [Suspect]
     Active Substance: TESTOSTERONE
     Dosage: ONE PUMP
     Route: 065
     Dates: start: 201204, end: 201302
  4. ANDROGEL [Suspect]
     Active Substance: TESTOSTERONE
     Indication: HYPOGONADISM
     Dosage: THREE PUMPS
     Route: 062
     Dates: start: 201301

REACTIONS (4)
  - Cardiogenic shock [Not Recovered/Not Resolved]
  - Cardiac arrest [Not Recovered/Not Resolved]
  - Myocardial infarction [Unknown]
  - Deep vein thrombosis [Unknown]

NARRATIVE: CASE EVENT DATE: 201302
